FAERS Safety Report 20040519 (Version 1)
Quarter: 2021Q4

REPORT INFORMATION
  Report Type: Spontaneous
  Country: US (occurrence: None)
  Receive Date: 20211104
  Receipt Date: 20211104
  Transmission Date: 20220303
  Serious: No
  Sender: FDA-Public Use
  Company Number: None

PATIENT

DRUGS (2)
  1. PHENYTOIN [Suspect]
     Active Substance: PHENYTOIN
  2. APIXABAN [Suspect]
     Active Substance: APIXABAN

REACTIONS (4)
  - Pain in extremity [None]
  - Peripheral artery occlusion [None]
  - Drug interaction [None]
  - Contraindicated product administered [None]
